FAERS Safety Report 7242245-1 (Version None)
Quarter: 2011Q1

REPORT INFORMATION
  Report Type: 
  Country: None (occurrence: None)
  Receive Date: 20110124
  Receipt Date: 20110110
  Transmission Date: 20110831
  Serious: Yes (Hospitalization, Disabling, Congenital Anomaly)
  Sender: FDA-Public Use
  Company Number: FR-ELI_LILLY_AND_COMPANY-FR201101001904

PATIENT
  Sex: Female

DRUGS (3)
  1. DEPAKOTE [Concomitant]
     Indication: MANIA
     Dosage: 500 MG, DAILY (1/D)
     Route: 064
  2. ZYPREXA [Suspect]
     Indication: BIPOLAR DISORDER
     Dosage: 7.5 MG, DAILY (1/D)
     Route: 064
  3. SEROPLEX [Concomitant]
     Indication: BIPOLAR DISORDER
     Dosage: 40 MG, DAILY (1/D)
     Route: 064

REACTIONS (5)
  - TALIPES [None]
  - TOXICITY TO VARIOUS AGENTS [None]
  - MACROSOMIA [None]
  - DRUG EXPOSURE DURING PREGNANCY [None]
  - DRUG WITHDRAWAL SYNDROME [None]
